FAERS Safety Report 10183982 (Version 1)
Quarter: 2014Q2

REPORT INFORMATION
  Report Type: Spontaneous
  Country: GB (occurrence: GB)
  Receive Date: 20140520
  Receipt Date: 20140520
  Transmission Date: 20141212
  Serious: Yes (Other)
  Sender: FDA-Public Use
  Company Number: GB-009507513-1405GBR009346

PATIENT
  Age: 25 Year
  Sex: Female
  Weight: 85 kg

DRUGS (13)
  1. MIRTAZAPINE [Suspect]
     Indication: SCHIZOPHRENIA
     Route: 048
  2. ARIPIPRAZOLE [Suspect]
     Indication: SCHIZOPHRENIA
  3. PROCYCLIDINE HYDROCHLORIDE [Suspect]
     Indication: SCHIZOPHRENIA
  4. ZOPICLONE [Suspect]
     Indication: SCHIZOPHRENIA
  5. LAMOTRIGINE [Suspect]
     Indication: SCHIZOPHRENIA
     Dosage: 300 MG, QD
  6. NICORETTE (NICOTINE) [Suspect]
     Dates: start: 20130808
  7. VENTOLIN (ALBUTEROL SULFATE) [Suspect]
     Dates: start: 20131129
  8. CEPHALEXIN [Suspect]
     Indication: URINARY TRACT INFECTION
     Dosage: UNK
     Dates: start: 20130812
  9. CEPHALEXIN [Suspect]
     Dosage: UNK
     Route: 065
     Dates: start: 20130827
  10. CYCLIZINE [Suspect]
     Dates: start: 20130902
  11. CLARITHROMYCIN [Suspect]
     Dates: start: 20131129
  12. ERYTHROMYCIN [Suspect]
     Dosage: UNK
     Dates: start: 20130116
  13. VITAMINS (UNSPECIFIED) [Concomitant]
     Indication: PREGNANCY
     Dosage: OVER THE COUNTER PREGNANCY VITAMINS AND MINERALS

REACTIONS (2)
  - Caesarean section [Unknown]
  - Maternal exposure during pregnancy [Recovered/Resolved]
